FAERS Safety Report 25233842 (Version 2)
Quarter: 2025Q2

REPORT INFORMATION
  Report Type: Spontaneous
  Country: FR (occurrence: FR)
  Receive Date: 20250424
  Receipt Date: 20250516
  Transmission Date: 20250717
  Serious: Yes (Other)
  Sender: TEVA
  Company Number: None

PATIENT
  Sex: Male

DRUGS (2)
  1. CETIRIZINE [Suspect]
     Active Substance: CETIRIZINE HYDROCHLORIDE
     Indication: Maternal exposure during pregnancy
     Dosage: CETIRIZINE HYDROCHLORIDE
     Route: 064
     Dates: start: 20150906
  2. SERETIDE [Suspect]
     Active Substance: FLUTICASONE PROPIONATE\SALMETEROL XINAFOATE
     Indication: Maternal exposure during pregnancy
     Dosage: 500/50 MICROGRAMS/DOSE, INHALATION POWDER IN SINGLE-DOSE CONTAINER
     Route: 064
     Dates: start: 202310, end: 2024

REACTIONS (2)
  - Neonatal infection [Recovered/Resolved]
  - Maternal exposure timing unspecified [Recovered/Resolved]

NARRATIVE: CASE EVENT DATE: 20231001
